FAERS Safety Report 5150389-3 (Version None)
Quarter: 2006Q4

REPORT INFORMATION
  Report Type: 
  Country: None (occurrence: None)
  Receive Date: 20061110
  Receipt Date: 20061110
  Transmission Date: 20070319
  Serious: No
  Sender: FDA-Public Use
  Company Number: None

PATIENT
  Age: 54 Year
  Sex: Male
  Weight: 77.1115 kg

DRUGS (1)
  1. CVS PAIN RELIEF EXTRA STRENGTH CVS PHARMACY [Suspect]
     Dosage: 500 MG
     Dates: start: 20061102, end: 20061103

REACTIONS (3)
  - DIARRHOEA HAEMORRHAGIC [None]
  - PHARMACEUTICAL PRODUCT COMPLAINT [None]
  - POOR QUALITY DRUG ADMINISTERED [None]
